FAERS Safety Report 14351282 (Version 3)
Quarter: 2018Q1

REPORT INFORMATION
  Report Type: Spontaneous
  Country: JP (occurrence: JP)
  Receive Date: 20180104
  Receipt Date: 20180123
  Transmission Date: 20180509
  Serious: Yes (Hospitalization)
  Sender: FDA-Public Use
  Company Number: JP-ASTRAZENECA-2017SF33296

PATIENT
  Age: 67 Year
  Sex: Female

DRUGS (2)
  1. NEXIUM [Suspect]
     Active Substance: ESOMEPRAZOLE MAGNESIUM
     Route: 048
     Dates: start: 20171206, end: 20171217
  2. GASLON [Suspect]
     Active Substance: IRSOGLADINE MALEATE
     Dosage: DOSE UNKNOWN, TWO TIMES A DAY
     Route: 048
     Dates: start: 20171206, end: 20171217

REACTIONS (2)
  - Drug dose omission [Unknown]
  - Jaundice cholestatic [Not Recovered/Not Resolved]

NARRATIVE: CASE EVENT DATE: 20171217
